FAERS Safety Report 7503332-3 (Version None)
Quarter: 2011Q2

REPORT INFORMATION
  Report Type: 
  Country: None (occurrence: None)
  Receive Date: 20110525
  Receipt Date: 20110520
  Transmission Date: 20111010
  Serious: Yes (Death)
  Sender: FDA-Public Use
  Company Number: PHHY2011NL43341

PATIENT
  Sex: Male

DRUGS (1)
  1. ZOMETA [Suspect]
     Indication: PROSTATE CANCER METASTATIC
     Dosage: 4 MG/5 ML, CONCENTRATE FOR SOLUTION FOR IV INFUSION
     Route: 042
     Dates: start: 20100727, end: 20110429

REACTIONS (1)
  - DEATH [None]
